FAERS Safety Report 18087374 (Version 3)
Quarter: 2021Q1

REPORT INFORMATION
  Report Type: Spontaneous
  Country: US (occurrence: US)
  Receive Date: 20200729
  Receipt Date: 20210322
  Transmission Date: 20210419
  Serious: No
  Sender: FDA-Public Use
  Company Number: US-GLAXOSMITHKLINE-US2020AMR143815

PATIENT
  Sex: Female

DRUGS (2)
  1. ZEJULA [Suspect]
     Active Substance: NIRAPARIB
     Indication: FALLOPIAN TUBE CANCER
     Dosage: 200 MG, QD (2 TABLETS BY MOUTH ALTERNATING EVERY OTHER DAY)
     Route: 048
     Dates: start: 20200716
  2. ZEJULA [Suspect]
     Active Substance: NIRAPARIB
     Dosage: 100 MG (1 TABLET BY MOUTH EVERY OTHER DAY)
     Route: 048
     Dates: start: 20200307

REACTIONS (6)
  - Tongue discomfort [Unknown]
  - Adverse drug reaction [Unknown]
  - Nausea [Unknown]
  - Bone pain [Unknown]
  - Inappropriate schedule of product administration [Unknown]
  - Product dose omission issue [Unknown]
